FAERS Safety Report 5013964-2 (Version None)
Quarter: 2006Q2

REPORT INFORMATION
  Report Type: 
  Country: None (occurrence: None)
  Receive Date: 20060525
  Receipt Date: 20060509
  Transmission Date: 20061013
  Serious: Yes (Other)
  Sender: FDA-Public Use
  Company Number: ZA200605002624

PATIENT
  Age: 34 Year
  Sex: Female
  Weight: 100.0181 kg

DRUGS (6)
  1. HUMULIN N [Suspect]
     Indication: DIABETES MELLITUS
     Dosage: 40 IU EACH EVENING SUBCUTANEOUS
     Route: 058
     Dates: start: 20050901, end: 20060504
  2. HUMULIN R [Suspect]
     Dosage: 90 IU DAILY (1/D) SUBCUTANEOUS
     Route: 058
  3. SERETIDE (FLUTICASONE PROPIONATE, SALMETEROL) [Concomitant]
  4. LIPITOR [Concomitant]
  5. COVERSYL (PERINDOPRIL) [Concomitant]
  6. HP ERGO (HUMAPEN ERGO) [Concomitant]

REACTIONS (4)
  - DYSPNOEA [None]
  - LOSS OF CONSCIOUSNESS [None]
  - PRURITUS GENERALISED [None]
  - RASH [None]
